FAERS Safety Report 9881830 (Version 1)
Quarter: 2014Q1

REPORT INFORMATION
  Report Type: Spontaneous
  Country: US (occurrence: US)
  Receive Date: 20140207
  Receipt Date: 20140207
  Transmission Date: 20141002
  Serious: Yes (Other)
  Sender: FDA-Public Use
  Company Number: US-PFIZER INC-2014033379

PATIENT
  Age: 82 Year
  Sex: Female

DRUGS (9)
  1. LYRICA [Suspect]
     Dosage: 150 MG, DAILY (50 MG ONE TAB Q AM, TWO TABS Q PM)
     Route: 048
  2. AMLODIPINE [Concomitant]
     Dosage: UNK
  3. CARDIZEM [Concomitant]
     Dosage: UNK
  4. B 12 [Concomitant]
     Dosage: UNK
  5. DESONIDE [Concomitant]
     Dosage: UNK
  6. KETOCONAZOLE [Concomitant]
     Dosage: UNK
  7. TYLENOL [Concomitant]
     Dosage: UNK, PRN
  8. VALIUM [Concomitant]
     Dosage: UNK
  9. ACETYLSALICYLIC ACID [Concomitant]
     Dosage: UNK

REACTIONS (6)
  - Fall [Unknown]
  - Ankle fracture [Unknown]
  - Mobility decreased [Unknown]
  - Joint injury [Unknown]
  - Back pain [Unknown]
  - Muscular weakness [Unknown]
